FAERS Safety Report 4851265-3 (Version None)
Quarter: 2005Q4

REPORT INFORMATION
  Report Type: 
  Country: None (occurrence: None)
  Receive Date: 20051130
  Receipt Date: 20051005
  Transmission Date: 20060501
  Serious: Yes (Hospitalization)
  Sender: FDA-Public Use
  Company Number: FABR-11266

PATIENT
  Age: 48 Year
  Sex: Male
  Weight: 54 kg

DRUGS (1)
  1. FABRAZYME [Suspect]
     Indication: FABRY'S DISEASE
     Dosage: 55 MG  Q2WKS IV
     Route: 042
     Dates: start: 20041218

REACTIONS (1)
  - URTICARIA GENERALISED [None]
